FAERS Safety Report 9768258 (Version 1)
Quarter: 2013Q4

REPORT INFORMATION
  Report Type: Spontaneous
  Country: JP (occurrence: JP)
  Receive Date: 20131217
  Receipt Date: 20131217
  Transmission Date: 20140711
  Serious: Yes (Other)
  Sender: FDA-Public Use
  Company Number: PHHY2013JP147808

PATIENT
  Sex: Female

DRUGS (2)
  1. DIOVAN [Suspect]
     Dosage: 40 MG, DAILY
     Route: 048
  2. DIOVAN [Suspect]
     Dosage: 20 MG, DAILY
     Route: 048

REACTIONS (2)
  - Dementia [Unknown]
  - Dysphagia [Unknown]
